FAERS Safety Report 5537947-9 (Version None)
Quarter: 2007Q4

REPORT INFORMATION
  Report Type: 
  Country: None (occurrence: None)
  Receive Date: 20071207
  Receipt Date: 20071127
  Transmission Date: 20080405
  Serious: Yes (Other)
  Sender: FDA-Public Use
  Company Number: US-PFIZER INC-2007100264

PATIENT
  Sex: Female
  Weight: 87.1 kg

DRUGS (3)
  1. LYRICA [Suspect]
     Indication: PAIN
  2. EFFEXOR [Concomitant]
  3. TRAZODONE HCL [Concomitant]

REACTIONS (6)
  - ANAEMIA [None]
  - BLOOD TEST ABNORMAL [None]
  - CONTUSION [None]
  - JOINT SWELLING [None]
  - OEDEMA PERIPHERAL [None]
  - WEIGHT INCREASED [None]
